FAERS Safety Report 24204115 (Version 1)
Quarter: 2024Q3

REPORT INFORMATION
  Report Type: Other
  Country: NL (occurrence: NL)
  Receive Date: 20240813
  Receipt Date: 20240813
  Transmission Date: 20241016
  Serious: Yes (Other)
  Sender: GLENMARK
  Company Number: None

PATIENT

DRUGS (7)
  1. LACOSAMIDE [Interacting]
     Active Substance: LACOSAMIDE
     Indication: Epilepsy
     Dosage: 50 MILLIGRAM (TABLET, 50 MG (MILLIGRAM))
     Route: 065
  2. HYDROXYCHLOROQUINE [Interacting]
     Active Substance: HYDROXYCHLOROQUINE
     Indication: Arthritis
     Dosage: 200 MILLIGRAM, OD (1X PER DAG 1 TABLET )
     Route: 065
     Dates: start: 20240614, end: 20240620
  3. HYDROXYCHLOROQUINE [Interacting]
     Active Substance: HYDROXYCHLOROQUINE
     Indication: Osteoarthritis
  4. BECLOMETHASONE DIPROPIONATE [Concomitant]
     Active Substance: BECLOMETHASONE DIPROPIONATE
     Indication: Product used for unknown indication
     Dosage: UNK (AEROSOL, 100 ?G/DOSIS (MICROGRAM PER DOSIS)  )
     Route: 065
  5. LOSARTAN [Concomitant]
     Active Substance: LOSARTAN\LOSARTAN POTASSIUM
     Indication: Product used for unknown indication
     Dosage: 50 MILLIGRAM (FILMOMHULDE TABLET, 50 MG (MILLIGRAM)  )
     Route: 065
  6. APIXABAN [Concomitant]
     Active Substance: APIXABAN
     Indication: Product used for unknown indication
     Dosage: 2.5 MILLIGRAM (TABLET, 2,5 MG (MILLIGRAM)  )
     Route: 065
  7. ALBUTEROL [Concomitant]
     Active Substance: ALBUTEROL
     Indication: Product used for unknown indication
     Dosage: UNK (AEROSOL, 100 ?G/DOSIS (MICROGRAM PER DOSIS))
     Route: 065

REACTIONS (2)
  - Drug interaction [Recovering/Resolving]
  - Epilepsy [Recovering/Resolving]
